FAERS Safety Report 16615328 (Version 2)
Quarter: 2019Q3

REPORT INFORMATION
  Report Type: Spontaneous
  Country: IT (occurrence: IT)
  Receive Date: 20190723
  Receipt Date: 20190812
  Transmission Date: 20191004
  Serious: Yes (Other)
  Sender: FDA-Public Use
  Company Number: IT-AUROBINDO-AUR-APL-2019-042665

PATIENT

DRUGS (13)
  1. QUETIAPINE. [Interacting]
     Active Substance: QUETIAPINE
     Dosage: 50 MILLIGRAM, ONCE A DAY
     Route: 048
     Dates: start: 20190124, end: 20190128
  2. QUETIAPINE. [Interacting]
     Active Substance: QUETIAPINE
     Dosage: 25 MILLIGRAM, ONCE A DAY
     Route: 048
     Dates: start: 20190128, end: 20190131
  3. TAVOR (LORAZEPAM) [Interacting]
     Active Substance: LORAZEPAM
     Indication: ANXIETY
     Dosage: 1 DOSAGE FORM, ONCE A DAY
     Route: 048
     Dates: start: 20190128, end: 20190131
  4. DEPAKIN CHRONO [Interacting]
     Active Substance: VALPROIC ACID
     Indication: EPILEPSY
     Dosage: 300 MILLIGRAM, ONCE A DAY
     Route: 048
     Dates: start: 20190121, end: 20190124
  5. DEPAKIN CHRONO [Interacting]
     Active Substance: VALPROIC ACID
     Dosage: 900 MILLIGRAM, ONCE A DAY
     Route: 048
     Dates: start: 20190124, end: 20190128
  6. QUETIAPINE. [Suspect]
     Active Substance: QUETIAPINE
     Indication: PSYCHOTIC DISORDER
     Dosage: 25 MILLIGRAM, ONCE A DAY
     Route: 048
     Dates: start: 20190121, end: 20190124
  7. LEVOPRAID (SULPIRIDE) [Suspect]
     Active Substance: SULPIRIDE
     Indication: PSYCHOTIC DISORDER
     Dosage: 50 MILLIGRAM, ONCE A DAY
     Route: 048
     Dates: start: 20190124, end: 20190128
  8. STILNOX [Interacting]
     Active Substance: ZOLPIDEM TARTRATE
     Indication: INSOMNIA
     Dosage: 5 MILLIGRAM, ONCE A DAY
     Route: 048
     Dates: start: 20190121, end: 20190124
  9. STILNOX [Interacting]
     Active Substance: ZOLPIDEM TARTRATE
     Dosage: 5 MILLIGRAM, ONCE A DAY
     Route: 048
     Dates: start: 20190128, end: 20190131
  10. STILNOX [Interacting]
     Active Substance: ZOLPIDEM TARTRATE
     Dosage: 10 MILLIGRAM, ONCE A DAY
     Route: 048
     Dates: start: 20190124, end: 20190128
  11. TALOFEN [Interacting]
     Active Substance: PROMAZINE HYDROCHLORIDE
     Indication: PSYCHOTIC DISORDER
     Dosage: 10 GTT DROPS, ONCE A DAY
     Route: 048
     Dates: start: 20190121, end: 20190131
  12. CLOPIXOL [Suspect]
     Active Substance: ZUCLOPENTHIXOL
     Indication: PSYCHOTIC DISORDER
     Dosage: 1 DOSAGE FORM, ONCE A DAY
     Route: 048
     Dates: start: 20190107, end: 20190121
  13. DEPAKIN CHRONO [Interacting]
     Active Substance: VALPROIC ACID
     Dosage: 300 MILLIGRAM, ONCE A DAY
     Route: 048
     Dates: start: 20190128, end: 20190131

REACTIONS (4)
  - Bradyphrenia [Recovering/Resolving]
  - Dysphagia [Recovering/Resolving]
  - Gait disturbance [Recovering/Resolving]
  - Persecutory delusion [Recovering/Resolving]

NARRATIVE: CASE EVENT DATE: 20190128
